FAERS Safety Report 21323454 (Version 3)
Quarter: 2023Q1

REPORT INFORMATION
  Report Type: Report from Study
  Country: US (occurrence: US)
  Receive Date: 20220912
  Receipt Date: 20230105
  Transmission Date: 20230418
  Serious: Yes (Other)
  Sender: FDA-Public Use
  Company Number: US-ABBVIE-22K-163-4394902-00

PATIENT
  Sex: Male
  Weight: 94 kg

DRUGS (12)
  1. IMBRUVICA [Suspect]
     Active Substance: IBRUTINIB
     Indication: Chronic lymphocytic leukaemia
     Route: 048
     Dates: start: 20210623
  2. IRBESARTAN [Concomitant]
     Active Substance: IRBESARTAN
     Indication: Blood pressure measurement
  3. PFIZER-BIONTECH COVID-19 VACCINE [Concomitant]
     Active Substance: TOZINAMERAN
     Indication: COVID-19 immunisation
     Dosage: BOOSTER DOSE?ONE IN ONCE
     Route: 030
  4. ASPIRIN [Concomitant]
     Active Substance: ASPIRIN
     Indication: Cardiac disorder
  5. MODERNA COVID-19 VACCINE [Concomitant]
     Active Substance: ELASOMERAN
     Indication: COVID-19 immunisation
     Dosage: 1ST DOSE?ONE IN ONCE
     Route: 030
  6. MODERNA COVID-19 VACCINE [Concomitant]
     Active Substance: ELASOMERAN
     Indication: COVID-19 immunisation
     Dosage: 2ND DOSE?DISCONTINUED
     Route: 030
  7. RANEXA [Concomitant]
     Active Substance: RANOLAZINE
     Indication: Cardiac disorder
  8. Metropolol ER [Concomitant]
     Indication: Cardiac disorder
  9. Tamsulosin-HCL [Concomitant]
     Indication: Nephrolithiasis
  10. BRILINTA [Concomitant]
     Active Substance: TICAGRELOR
     Indication: Anticoagulant therapy
  11. SIMVASTATIN [Concomitant]
     Active Substance: SIMVASTATIN
     Indication: Blood cholesterol
  12. FINASTERIDE [Concomitant]
     Active Substance: FINASTERIDE
     Indication: Renal disorder

REACTIONS (13)
  - Skin haemorrhage [Not Recovered/Not Resolved]
  - Rash [Recovered/Resolved]
  - Sciatica [Recovering/Resolving]
  - Head injury [Recovered/Resolved]
  - Haemorrhage [Unknown]
  - Impaired healing [Unknown]
  - Fall [Unknown]
  - Fatigue [Not Recovered/Not Resolved]
  - Stomatitis [Recovering/Resolving]
  - Contusion [Unknown]
  - Rash pruritic [Recovering/Resolving]
  - Rash erythematous [Recovering/Resolving]
  - Skin laceration [Recovered/Resolved]

NARRATIVE: CASE EVENT DATE: 20210101
